FAERS Safety Report 9832989 (Version 3)
Quarter: 2014Q2

REPORT INFORMATION
  Report Type: Spontaneous
  Country: NO (occurrence: NO)
  Receive Date: 20140121
  Receipt Date: 20140401
  Transmission Date: 20141212
  Serious: Yes (Other)
  Sender: FDA-Public Use
  Company Number: NO-B.I. PHARMACEUTICALS,INC./RIDGEFIELD-2014-BI-01923NO

PATIENT
  Age: 77 Year
  Sex: Female

DRUGS (5)
  1. PRADAXA [Suspect]
     Indication: ATRIAL FIBRILLATION
     Dosage: 300 MG
     Route: 048
     Dates: start: 20130901, end: 20131114
  2. NORVASC/AMLODIPINE [Concomitant]
     Dosage: 5 MG
     Route: 048
  3. OPATANOL/OLOPATADINE [Concomitant]
     Dosage: DOSE PER APPLICATION: 1 GTT DROP
     Route: 031
  4. ISOPTIN/VERAPAMIL [Concomitant]
     Dosage: 80 MG
     Route: 048
  5. IMOVANE/ZOPICLONE [Concomitant]
     Indication: SLEEP DISORDER
     Dosage: 3.75 MG
     Route: 048

REACTIONS (1)
  - Hepatic enzyme abnormal [Recovered/Resolved]
